FAERS Safety Report 23827589 (Version 1)
Quarter: 2024Q2

REPORT INFORMATION
  Report Type: Spontaneous
  Country: DE (occurrence: DE)
  Receive Date: 20240507
  Receipt Date: 20240507
  Transmission Date: 20240715
  Serious: Yes (Other)
  Sender: FDA-Public Use
  Company Number: DE-STADA-084930

PATIENT
  Age: 51 Year
  Sex: Female
  Weight: 70 kg

DRUGS (6)
  1. TRIAZOLAM [Suspect]
     Active Substance: TRIAZOLAM
     Dosage: UNK
     Route: 048
     Dates: start: 20140927, end: 20140927
  2. DOXYCYCLINE [Suspect]
     Active Substance: DOXYCYCLINE
     Dosage: UNK
     Route: 048
     Dates: start: 20140927, end: 20140927
  3. ACETAMINOPHEN\ASCORBIC ACID\CAFFEINE\CHLORPHENIRAMINE MALEATE [Suspect]
     Active Substance: ACETAMINOPHEN\ASCORBIC ACID\CAFFEINE\CHLORPHENIRAMINE MALEATE
     Dosage: UNK
     Route: 048
     Dates: start: 20140927, end: 20140927
  4. OPIPRAMOL [Suspect]
     Active Substance: OPIPRAMOL
     Dosage: UNK
     Route: 048
     Dates: start: 20140927, end: 20140927
  5. CETIRIZINE HYDROCHLORIDE [Suspect]
     Active Substance: CETIRIZINE HYDROCHLORIDE
     Dosage: UNK
     Route: 048
     Dates: start: 20140927, end: 20140927
  6. PIPAMPERONE HYDROCHLORIDE [Suspect]
     Active Substance: PIPAMPERONE HYDROCHLORIDE
     Dosage: UNK
     Route: 048
     Dates: start: 20140927, end: 20140927

REACTIONS (5)
  - Intentional overdose [Unknown]
  - Suicide attempt [Unknown]
  - Coma [Recovered/Resolved]
  - Extrasystoles [Unknown]
  - Miosis [Unknown]

NARRATIVE: CASE EVENT DATE: 20140927
